FAERS Safety Report 21499072 (Version 1)
Quarter: 2022Q4

REPORT INFORMATION
  Report Type: Spontaneous
  Country: GB (occurrence: GB)
  Receive Date: 20221024
  Receipt Date: 20221024
  Transmission Date: 20230113
  Serious: Yes (Other)
  Sender: FDA-Public Use
  Company Number: None

PATIENT
  Age: 73 Year
  Sex: Female
  Weight: 52 kg

DRUGS (1)
  1. DOTAREM [Suspect]
     Active Substance: GADOTERATE MEGLUMINE
     Indication: Scan with contrast
     Dosage: ONE DOSE OF POSSIBLY 279.32 MG/ML (THIS IS ON THE PACKET)
     Route: 065
     Dates: start: 20221007, end: 20221007

REACTIONS (6)
  - Eyelid irritation [Unknown]
  - Swelling [Recovered/Resolved]
  - Nausea [Recovered/Resolved]
  - Headache [Recovered/Resolved]
  - Swelling of eyelid [Recovered/Resolved]
  - Swelling face [Unknown]

NARRATIVE: CASE EVENT DATE: 20221007
